FAERS Safety Report 11630587 (Version 2)
Quarter: 2015Q4

REPORT INFORMATION
  Report Type: Spontaneous
  Country: US (occurrence: None)
  Receive Date: 20151014
  Receipt Date: 20151104
  Transmission Date: 20160304
  Serious: No
  Sender: FDA-Public Use
  Company Number: US-MDT-ADR-2015-01955

PATIENT
  Age: 28 Year
  Sex: Female

DRUGS (2)
  1. VITAMIN B12 [Suspect]
     Active Substance: CYANOCOBALAMIN
     Dosage: MONTHLY SHOTS
  2. GABLOFEN [Suspect]
     Active Substance: BACLOFEN
     Indication: MUSCLE SPASTICITY
     Dosage: 396.4 MCG/DAY

REACTIONS (3)
  - Device use error [None]
  - Incorrect dose administered by device [None]
  - No adverse event [None]
